FAERS Safety Report 12861307 (Version 1)
Quarter: 2016Q4

REPORT INFORMATION
  Report Type: Spontaneous
  Country: US (occurrence: US)
  Receive Date: 20161019
  Receipt Date: 20161019
  Transmission Date: 20170207
  Serious: Yes (Life-Threatening, Disabling, Other)
  Sender: FDA-Public Use
  Company Number: None

PATIENT
  Age: 59 Year
  Sex: Male
  Weight: 76 kg

DRUGS (9)
  1. PAROXETINE HCL [Concomitant]
     Active Substance: PAROXETINE HYDROCHLORIDE
  2. SEROQUEL [Suspect]
     Active Substance: QUETIAPINE FUMARATE
     Indication: PSYCHOTIC DISORDER
     Dosage: ABLET TWICE PER DAY THRUE THE MONTH
     Route: 048
     Dates: start: 20160505, end: 20160522
  3. SIMVASTATIN. [Concomitant]
     Active Substance: SIMVASTATIN
  4. MULTIVITAMINS [Concomitant]
     Active Substance: VITAMINS
  5. ARIPIPRAZOLE. [Concomitant]
     Active Substance: ARIPIPRAZOLE
  6. MINERALS [Concomitant]
     Active Substance: MINERALS
  7. VITAMINS, FRY^S OR KROGER, COMPLETE MEN^S HEALTH SENIOR [Concomitant]
  8. SEROQUEL [Suspect]
     Active Substance: QUETIAPINE FUMARATE
     Indication: MENTAL DISORDER
     Dosage: ABLET TWICE PER DAY THRUE THE MONTH
     Route: 048
     Dates: start: 20160505, end: 20160522
  9. SEROQUEL [Suspect]
     Active Substance: QUETIAPINE FUMARATE
     Indication: MOOD SWINGS
     Dosage: ABLET TWICE PER DAY THRUE THE MONTH
     Route: 048
     Dates: start: 20160505, end: 20160522

REACTIONS (4)
  - Quality of life decreased [None]
  - Mental impairment [None]
  - Activities of daily living impaired [None]
  - Fear [None]

NARRATIVE: CASE EVENT DATE: 20160505
